FAERS Safety Report 23986262 (Version 1)
Quarter: 2024Q2

REPORT INFORMATION
  Report Type: Spontaneous
  Country: US (occurrence: None)
  Receive Date: 20240617
  Receipt Date: 20240617
  Transmission Date: 20240715
  Serious: Yes (Hospitalization, Disabling)
  Sender: FDA-Public Use
  Company Number: None

PATIENT
  Age: 44 Year
  Sex: Female
  Weight: 70.2 kg

DRUGS (6)
  1. ALPRAZOLAM [Suspect]
     Active Substance: ALPRAZOLAM
     Indication: Post-traumatic stress disorder
     Dosage: FREQUENCY : EVERY 8 HOURS;?
     Route: 048
     Dates: start: 20020322, end: 20230901
  2. GABAPENTIN [Concomitant]
  3. LEVOTHYROXINE [Concomitant]
     Active Substance: LEVOTHYROXINE\LEVOTHYROXINE SODIUM
  4. Vita lee (muli vitamin) vitamin D3 [Concomitant]
  5. MAGNESIUM [Concomitant]
  6. BENADRYL [Concomitant]
     Active Substance: DIPHENHYDRAMINE HYDROCHLORIDE

REACTIONS (16)
  - Insomnia [None]
  - Restlessness [None]
  - Depression [None]
  - Muscular weakness [None]
  - Paraesthesia [None]
  - Paraesthesia [None]
  - Seizure [None]
  - Akinesia [None]
  - Vision blurred [None]
  - Hypersensitivity [None]
  - Anxiety [None]
  - Agoraphobia [None]
  - Tremor [None]
  - Agitation [None]
  - Withdrawal syndrome [None]
  - Intrusive thoughts [None]

NARRATIVE: CASE EVENT DATE: 20230901
